FAERS Safety Report 25280782 (Version 2)
Quarter: 2025Q2

REPORT INFORMATION
  Report Type: Spontaneous
  Country: NL (occurrence: NL)
  Receive Date: 20250508
  Receipt Date: 20250509
  Transmission Date: 20250716
  Serious: Yes (Other)
  Sender: CHEPLAPHARM
  Company Number: NL-EUROCEPT-EC20250070

PATIENT
  Sex: Male

DRUGS (2)
  1. OLANZAPINE PAMOATE [Suspect]
     Active Substance: OLANZAPINE PAMOATE
     Indication: Psychotic disorder
  2. PHENPROCOUMON [Concomitant]
     Active Substance: PHENPROCOUMON
     Indication: Antiphospholipid syndrome

REACTIONS (6)
  - Catatonia [Unknown]
  - Dystonia [Unknown]
  - Musculoskeletal chest pain [Unknown]
  - Memory impairment [Unknown]
  - Peripheral swelling [Not Recovered/Not Resolved]
  - Gait disturbance [Unknown]
